FAERS Safety Report 22166889 (Version 1)
Quarter: 2023Q2

REPORT INFORMATION
  Report Type: Spontaneous
  Country: US (occurrence: US)
  Receive Date: 20230403
  Receipt Date: 20230403
  Transmission Date: 20230721
  Serious: No
  Sender: FDA-Public Use
  Company Number: US-TEVA-2023-US-2869656

PATIENT
  Sex: Female

DRUGS (1)
  1. DEXTROAMPHET SACCHARAT, AMPHET ASPARTATE, DEXTROAMPHET SULFATE AND AMP [Suspect]
     Active Substance: AMPHETAMINE ASPARTATE\AMPHETAMINE ASPARTATE MONOHYDRATE\AMPHETAMINE SULFATE\DEXTROAMPHETAMINE SACCHA
     Indication: Attention deficit hyperactivity disorder
     Dosage: 5 MG
     Route: 065
     Dates: start: 2022

REACTIONS (8)
  - Tachyphrenia [Unknown]
  - Anxiety [Unknown]
  - Hunger [Unknown]
  - Apathy [Unknown]
  - Headache [Unknown]
  - Nausea [Unknown]
  - Withdrawal syndrome [Unknown]
  - Drug ineffective [Unknown]
